FAERS Safety Report 5730758-0 (Version None)
Quarter: 2008Q2

REPORT INFORMATION
  Report Type: 
  Country: None (occurrence: None)
  Receive Date: 20080502
  Receipt Date: 20080423
  Transmission Date: 20081010
  Serious: Yes (Hospitalization, Other)
  Sender: FDA-Public Use
  Company Number: 163-20785-08041757

PATIENT
  Age: 53 Year
  Sex: Female

DRUGS (3)
  1. THALOMID [Suspect]
     Indication: MULTIPLE MYELOMA
     Dosage: 50 MG, 1 IN 1 D, ORAL; 200 MG, 4 IN 1 D, ORAL; 100 MG, 2 IN 1 D, ORAL
     Route: 048
     Dates: start: 20021017, end: 20021101
  2. THALOMID [Suspect]
     Indication: MULTIPLE MYELOMA
     Dosage: 50 MG, 1 IN 1 D, ORAL; 200 MG, 4 IN 1 D, ORAL; 100 MG, 2 IN 1 D, ORAL
     Route: 048
     Dates: start: 20060807, end: 20071001
  3. THALOMID [Suspect]
     Indication: MULTIPLE MYELOMA
     Dosage: 50 MG, 1 IN 1 D, ORAL; 200 MG, 4 IN 1 D, ORAL; 100 MG, 2 IN 1 D, ORAL
     Route: 048
     Dates: start: 20070925

REACTIONS (3)
  - FALL [None]
  - HIP FRACTURE [None]
  - RIB FRACTURE [None]
